FAERS Safety Report 8270811-3 (Version None)
Quarter: 2012Q2

REPORT INFORMATION
  Report Type: 
  Country: None (occurrence: None)
  Receive Date: 20120410
  Receipt Date: 20120327
  Transmission Date: 20120825
  Serious: Yes (Other)
  Sender: FDA-Public Use
  Company Number: CA-ROCHE-1055860

PATIENT
  Sex: Female

DRUGS (6)
  1. BENADRYL [Concomitant]
  2. VENTOLIN [Concomitant]
  3. SINGULAIR [Concomitant]
  4. XOLAIR [Suspect]
     Indication: ASTHMA
     Route: 058
     Dates: start: 20120309
  5. ADVAIR DISKUS 100/50 [Concomitant]
  6. PREDNISONE TAB [Concomitant]

REACTIONS (9)
  - HEADACHE [None]
  - NECK PAIN [None]
  - PRODUCTIVE COUGH [None]
  - ARTHRALGIA [None]
  - CHEST DISCOMFORT [None]
  - BLOOD PRESSURE INCREASED [None]
  - BLOOD PRESSURE FLUCTUATION [None]
  - NASOPHARYNGITIS [None]
  - FEELING COLD [None]
